FAERS Safety Report 18418957 (Version 2)
Quarter: 2020Q4

REPORT INFORMATION
  Report Type: Spontaneous
  Country: EG (occurrence: EG)
  Receive Date: 20201023
  Receipt Date: 20201130
  Transmission Date: 20210114
  Serious: Yes (Death, Life-Threatening, Hospitalization, Other)
  Sender: FDA-Public Use
  Company Number: EG-SA-2020SA298502

PATIENT

DRUGS (1)
  1. CEREZYME [Suspect]
     Active Substance: IMIGLUCERASE
     Indication: GAUCHER^S DISEASE TYPE I
     Dosage: 60 UNK, QOW; 60 U/KG, 2 VIALS
     Route: 042
     Dates: start: 2012, end: 201503

REACTIONS (6)
  - Transfusion related complication [Fatal]
  - Cardiac failure [Unknown]
  - Acute hepatic failure [Fatal]
  - Multiple organ dysfunction syndrome [Fatal]
  - Sepsis [Unknown]
  - Cardiomegaly [Unknown]

NARRATIVE: CASE EVENT DATE: 2018
